FAERS Safety Report 6648458-1 (Version None)
Quarter: 2010Q1

REPORT INFORMATION
  Report Type: 
  Country: None (occurrence: None)
  Receive Date: 20100319
  Receipt Date: 20100305
  Transmission Date: 20100710
  Serious: Yes (Other)
  Sender: FDA-Public Use
  Company Number: 2010-00281

PATIENT
  Age: 50 Year
  Sex: Female
  Weight: 70.3075 kg

DRUGS (1)
  1. SUPRAX [Suspect]
     Indication: UPPER RESPIRATORY TRACT INFECTION
     Dosage: 400 MG (1 IN 1 D), PER ORAL
     Route: 048
     Dates: start: 20100305, end: 20100305

REACTIONS (2)
  - BLISTER [None]
  - HYPERSENSITIVITY [None]
